FAERS Safety Report 5385434-3 (Version None)
Quarter: 2007Q3

REPORT INFORMATION
  Report Type: 
  Country: None (occurrence: None)
  Receive Date: 20070706
  Receipt Date: 20070706
  Transmission Date: 20080115
  Serious: Yes (Other)
  Sender: FDA-Public Use
  Company Number: None

PATIENT
  Age: 59 Year
  Sex: Male
  Weight: 88 kg

DRUGS (1)
  1. DICLOFENAC SODIUM [Suspect]
     Indication: CARPAL TUNNEL SYNDROME
     Dosage: 50 MG BID PO
     Route: 048
     Dates: start: 20060224, end: 20070222

REACTIONS (1)
  - HEPATIC ENZYME INCREASED [None]
